FAERS Safety Report 8354074 (Version 2)
Quarter: 2012Q4

REPORT INFORMATION
  Report Type: 
  Country: GR (occurrence: GR)
  Receive Date: 20120125
  Receipt Date: 20121222
  Transmission Date: 20130627
  Serious: Yes (Hospitalization)
  Sender: FDA-Public Use
  Company Number: GR-B.I. PHARMACEUTICALS,INC./RIDGEFIELD-2012-EU-00392GB

PATIENT
  Age: 70 Year
  Sex: Male

DRUGS (3)
  1. PRADAXA [Suspect]
     Indication: ATRIAL FIBRILLATION
     Dosage: 220 mg
     Route: 048
     Dates: start: 201111, end: 201201
  2. NORVASC [Concomitant]
     Indication: HYPERTENSION
  3. MICARDIS PLUS [Concomitant]
     Indication: HYPERTENSION

REACTIONS (1)
  - Ischaemic stroke [Recovered/Resolved]
